FAERS Safety Report 18979217 (Version 1)
Quarter: 2021Q1

REPORT INFORMATION
  Report Type: Spontaneous
  Country: US (occurrence: US)
  Receive Date: 20210308
  Receipt Date: 20210308
  Transmission Date: 20210420
  Serious: Yes (Death, Life-Threatening, Hospitalization, Other)
  Sender: FDA-Public Use
  Company Number: US-DRREDDYS-USA/USA/21/0132590

PATIENT
  Age: 22 Year
  Sex: Male
  Weight: 94.7 kg

DRUGS (8)
  1. PROPOFOL INJECTABLE EMULSION [Suspect]
     Active Substance: PROPOFOL
     Dosage: FOR INTUBATION
     Route: 040
  2. PROPOFOL INJECTABLE EMULSION [Suspect]
     Active Substance: PROPOFOL
     Dosage: 4.8?6 MG/KG/HR
     Route: 041
  3. PROPOFOL INJECTABLE EMULSION [Suspect]
     Active Substance: PROPOFOL
     Indication: SEDATION
     Dosage: DECREASED TO 1.2?2.4 MG/KG/HR
     Route: 041
  4. PROPOFOL INJECTABLE EMULSION [Suspect]
     Active Substance: PROPOFOL
     Dosage: 4.8?6 MG/KG/HR
  5. PROPOFOL INJECTABLE EMULSION [Suspect]
     Active Substance: PROPOFOL
     Dosage: 4.5 MG/KG/HR POSTCRANIOTOMY
     Route: 041
  6. PROPOFOL INJECTABLE EMULSION [Suspect]
     Active Substance: PROPOFOL
     Dosage: DECREASED TO 1.2?2.4 MG/KG/HR
     Route: 041
  7. PROPOFOL INJECTABLE EMULSION [Suspect]
     Active Substance: PROPOFOL
     Dosage: ARRIVED ON 6 MG/KG/HR
     Route: 041
  8. MIDAZOLAM. [Concomitant]
     Active Substance: MIDAZOLAM
     Indication: SEDATION

REACTIONS (7)
  - Bundle branch block [Fatal]
  - Tachycardia [Fatal]
  - Hepatic enzyme increased [Fatal]
  - Hypotension [Fatal]
  - Propofol infusion syndrome [Fatal]
  - Metabolic acidosis [Fatal]
  - Myocardial necrosis marker increased [Fatal]
